FAERS Safety Report 9807517 (Version 1)
Quarter: 2014Q1

REPORT INFORMATION
  Report Type: Spontaneous
  Country: US (occurrence: US)
  Receive Date: 20140110
  Receipt Date: 20140110
  Transmission Date: 20141002
  Serious: No
  Sender: FDA-Public Use
  Company Number: US-SANOFI-AVENTIS-2012SA090788

PATIENT
  Age: 95 Year
  Sex: Female

DRUGS (2)
  1. PLAVIX [Suspect]
  2. ASPIRIN [Suspect]

REACTIONS (4)
  - Dysphagia [Not Recovered/Not Resolved]
  - Nausea [Not Recovered/Not Resolved]
  - Cardiac disorder [Not Recovered/Not Resolved]
  - Epistaxis [Not Recovered/Not Resolved]
